FAERS Safety Report 10523790 (Version 1)
Quarter: 2014Q4

REPORT INFORMATION
  Report Type: Spontaneous
  Country: US (occurrence: None)
  Receive Date: 20141014
  Receipt Date: 20141014
  Transmission Date: 20150528
  Serious: Yes (Other)
  Sender: FDA-Public Use
  Company Number: None

PATIENT
  Age: 60 Year
  Sex: Male
  Weight: 68.04 kg

DRUGS (9)
  1. VALSARTAN. [Suspect]
     Active Substance: VALSARTAN
     Indication: HYPERTENSION
     Dosage: 1 PILL QD ORAL
     Route: 048
     Dates: start: 20140715, end: 20140829
  2. ZIAGEN [Concomitant]
     Active Substance: ABACAVIR SULFATE
  3. OMEPRAZOLE. [Concomitant]
     Active Substance: OMEPRAZOLE
  4. WELCHOL [Concomitant]
     Active Substance: COLESEVELAM HYDROCHLORIDE
  5. AMODIPINE [Concomitant]
  6. ISENTRESS [Concomitant]
     Active Substance: RALTEGRAVIR POTASSIUM
  7. CLONAZEPAM. [Concomitant]
     Active Substance: CLONAZEPAM
  8. INTELENCE [Concomitant]
     Active Substance: ETRAVIRINE
  9. POTASSIUM CITRATE. [Concomitant]
     Active Substance: POTASSIUM CITRATE

REACTIONS (10)
  - Platelet count decreased [None]
  - Diarrhoea [None]
  - Blood pressure decreased [None]
  - Blood creatinine increased [None]
  - Anaemia [None]
  - Malaise [None]
  - Glomerular filtration rate decreased [None]
  - Renal disorder [None]
  - Dizziness [None]
  - Product substitution issue [None]

NARRATIVE: CASE EVENT DATE: 20140829
